FAERS Safety Report 8943495 (Version 2)
Quarter: 2013Q1

REPORT INFORMATION
  Report Type: Spontaneous
  Country: US (occurrence: US)
  Receive Date: 20121203
  Receipt Date: 20130108
  Transmission Date: 20140127
  Serious: Yes (Life-Threatening, Hospitalization, Disabling, Other)
  Sender: FDA-Public Use
  Company Number: US-GLAXOSMITHKLINE-A1003229A

PATIENT
  Age: 47 Year
  Sex: Female
  Weight: 80.5 kg

DRUGS (9)
  1. BENLYSTA [Suspect]
     Indication: SYSTEMIC LUPUS ERYTHEMATOSUS
     Route: 042
  2. CEFEPIME [Suspect]
     Indication: MENINGOCOCCAL BACTERAEMIA
     Route: 065
  3. VANCOMYCIN [Suspect]
     Indication: MENINGOCOCCAL BACTERAEMIA
     Route: 065
  4. PREDNISONE [Concomitant]
     Indication: SYSTEMIC LUPUS ERYTHEMATOSUS
     Dosage: 5MG PER DAY
     Route: 048
  5. IBUPROFEN [Concomitant]
     Indication: SYSTEMIC LUPUS ERYTHEMATOSUS
     Dosage: 800MG THREE TIMES PER DAY
     Route: 048
  6. PLAQUENIL [Concomitant]
     Indication: SYSTEMIC LUPUS ERYTHEMATOSUS
     Dosage: 200MG TWICE PER DAY
     Route: 048
  7. ACTOS [Concomitant]
     Indication: DIABETES MELLITUS
     Dosage: 15MG PER DAY
     Route: 048
  8. LASIX [Concomitant]
     Route: 048
  9. VITAMIN D [Concomitant]
     Route: 048

REACTIONS (21)
  - Meningococcal bacteraemia [Not Recovered/Not Resolved]
  - Sepsis [Unknown]
  - Purpura fulminans [Unknown]
  - Ventricular fibrillation [Unknown]
  - Cardiac arrest [Unknown]
  - Leg amputation [Unknown]
  - Hand amputation [Unknown]
  - Necrosis [Unknown]
  - Septic shock [Unknown]
  - Nausea [Unknown]
  - Vomiting [Unknown]
  - Hypotension [Unknown]
  - Rash generalised [Unknown]
  - Thrombocytopenia [Unknown]
  - Peripheral ischaemia [Unknown]
  - Wound [Unknown]
  - Asthenia [Unknown]
  - Hypokinesia [Unknown]
  - Cardiovascular deconditioning [Unknown]
  - Myopathy [Unknown]
  - Neuropathy peripheral [Unknown]
